FAERS Safety Report 4508001-X (Version None)
Quarter: 2004Q4

REPORT INFORMATION
  Report Type: 
  Country: None (occurrence: None)
  Receive Date: 20041122
  Receipt Date: 20041122
  Transmission Date: 20050328
  Serious: No
  Sender: FDA-Public Use
  Company Number: None

PATIENT
  Age: 84 Year
  Sex: Male
  Weight: 78.2 kg

DRUGS (1)
  1. ERYTHROMYCIN [Suspect]
     Indication: PNEUMONITIS
     Dosage: IV 500 MG Q 6 H
     Route: 042
     Dates: start: 20041006, end: 20041010

REACTIONS (1)
  - INFUSION SITE BURNING [None]
